FAERS Safety Report 11055377 (Version 1)
Quarter: 2015Q2

REPORT INFORMATION
  Report Type: Spontaneous
  Country: IE (occurrence: GB)
  Receive Date: 20150422
  Receipt Date: 20150422
  Transmission Date: 20150821
  Serious: Yes (Life-Threatening)
  Sender: FDA-Public Use
  Company Number: IE-ABBVIE-15P-229-1379371-00

PATIENT
  Sex: Male

DRUGS (2)
  1. CREON [Suspect]
     Active Substance: PANCRELIPASE AMYLASE\PANCRELIPASE LIPASE\PANCRELIPASE PROTEASE
     Indication: PRODUCT USED FOR UNKNOWN INDICATION
     Dosage: CREON 40,000
     Route: 065
  2. CREON [Suspect]
     Active Substance: PANCRELIPASE AMYLASE\PANCRELIPASE LIPASE\PANCRELIPASE PROTEASE
     Dosage: 12 CAPSULES; (4 X CREON 10,000 CAPSULES TDS PRESCRIBED)
     Route: 065

REACTIONS (4)
  - Terminal state [Unknown]
  - Malaise [Unknown]
  - Therapy cessation [Unknown]
  - Dysphagia [Unknown]
